FAERS Safety Report 8830101 (Version 2)
Quarter: 2013Q1

REPORT INFORMATION
  Report Type: Spontaneous
  Country: CA (occurrence: CA)
  Receive Date: 20121008
  Receipt Date: 20130116
  Transmission Date: 20140127
  Serious: Yes (Hospitalization)
  Sender: FDA-Public Use
  Company Number: CA-B.I. PHARMACEUTICALS,INC./RIDGEFIELD-2012-CN-02018CN

PATIENT
  Age: 68 Year
  Sex: Female

DRUGS (6)
  1. PRADAX [Suspect]
     Indication: CEREBROVASCULAR ACCIDENT PROPHYLAXIS
     Dosage: 300 MG
     Route: 048
  2. PRADAX [Suspect]
     Indication: ATRIAL FIBRILLATION
  3. ALISKIREN [Concomitant]
     Indication: BLOOD PRESSURE INCREASED
  4. AMLODIPINE [Concomitant]
     Indication: BLOOD PRESSURE INCREASED
  5. METOPROLOL [Concomitant]
     Indication: ATRIAL FIBRILLATION
  6. DIGOXIN [Concomitant]
     Indication: ATRIAL FIBRILLATION

REACTIONS (2)
  - Cerebrovascular accident [Not Recovered/Not Resolved]
  - Cardioversion [Unknown]
